FAERS Safety Report 14901807 (Version 1)
Quarter: 2018Q2

REPORT INFORMATION
  Report Type: Spontaneous
  Country: US (occurrence: US)
  Receive Date: 20180516
  Receipt Date: 20180516
  Transmission Date: 20180711
  Serious: No
  Sender: FDA-Public Use
  Company Number: US-PFIZER INC-2018196932

PATIENT
  Age: 54 Year
  Sex: Female
  Weight: 77.11 kg

DRUGS (1)
  1. CHANTIX [Suspect]
     Active Substance: VARENICLINE TARTRATE
     Indication: SMOKING CESSATION THERAPY
     Dosage: UNK
     Dates: start: 2016, end: 2016

REACTIONS (5)
  - Tremor [Unknown]
  - Malaise [Unknown]
  - Eating disorder [Unknown]
  - Dizziness [Unknown]
  - Hunger [Unknown]

NARRATIVE: CASE EVENT DATE: 2016
